FAERS Safety Report 16597722 (Version 2)
Quarter: 2019Q3

REPORT INFORMATION
  Report Type: Spontaneous
  Country: BR (occurrence: BR)
  Receive Date: 20190719
  Receipt Date: 20190726
  Transmission Date: 20191004
  Serious: Yes (Other)
  Sender: FDA-Public Use
  Company Number: BR-PFIZER INC-2019304984

PATIENT
  Age: 57 Year
  Sex: Female
  Weight: 77 kg

DRUGS (5)
  1. LORAX [LORAZEPAM] [Suspect]
     Active Substance: LORAZEPAM
     Indication: DEPRESSION
     Dosage: 3 MG, DAILY
     Dates: start: 1973
  2. DEFLAZACORT [Concomitant]
     Active Substance: DEFLAZACORT
     Dosage: TWICE PER WEEK
     Dates: start: 2018
  3. LORATADINE. [Concomitant]
     Active Substance: LORATADINE
     Dosage: UNK
     Dates: start: 2014
  4. LORAX [LORAZEPAM] [Suspect]
     Active Substance: LORAZEPAM
     Indication: ANXIETY
     Dosage: 2 MG, DAILY
  5. LORAX [LORAZEPAM] [Suspect]
     Active Substance: LORAZEPAM
     Indication: NERVOUS SYSTEM DISORDER
     Dosage: 1.5 DF, DAILY (HALF TABLET IN THE AFTERNOON AND 1 TABLET IN THE EVENING)
     Dates: start: 2017, end: 201902

REACTIONS (9)
  - Product use issue [Unknown]
  - Allergic reaction to excipient [Recovered/Resolved]
  - Drug dependence [Not Recovered/Not Resolved]
  - Suicidal ideation [Not Recovered/Not Resolved]
  - Withdrawal syndrome [Not Recovered/Not Resolved]
  - Feeling of despair [Not Recovered/Not Resolved]
  - Feeling abnormal [Not Recovered/Not Resolved]
  - Wrong technique in product usage process [Unknown]
  - Intentional product use issue [Unknown]

NARRATIVE: CASE EVENT DATE: 2007
